FAERS Safety Report 14963295 (Version 2)
Quarter: 2018Q2

REPORT INFORMATION
  Report Type: Spontaneous
  Country: ES (occurrence: ES)
  Receive Date: 20180601
  Receipt Date: 20180615
  Transmission Date: 20180711
  Serious: Yes (Death, Hospitalization)
  Sender: FDA-Public Use
  Company Number: ES-009507513-1805ESP011797

PATIENT
  Age: 53 Year
  Sex: Female

DRUGS (6)
  1. NORVIR [Suspect]
     Active Substance: RITONAVIR
     Indication: PRODUCT USED FOR UNKNOWN INDICATION
     Dosage: 0-1-0
     Route: 048
     Dates: start: 20170420
  2. NEURONTIN [Suspect]
     Active Substance: GABAPENTIN
     Indication: PRODUCT USED FOR UNKNOWN INDICATION
     Dosage: 1-1-1
     Route: 048
     Dates: start: 20170420
  3. PREZISTA [Suspect]
     Active Substance: DARUNAVIR ETHANOLATE
     Indication: PRODUCT USED FOR UNKNOWN INDICATION
     Dosage: 0-1-0
     Route: 048
     Dates: start: 20170420
  4. CEFAZOLINA [Concomitant]
     Active Substance: CEFAZOLIN SODIUM
     Dosage: 2GR/8H
     Route: 042
     Dates: start: 20170523, end: 20170630
  5. ISENTRESS [Suspect]
     Active Substance: RALTEGRAVIR POTASSIUM
     Indication: PRODUCT USED FOR UNKNOWN INDICATION
     Dosage: 1-0-1
     Route: 048
     Dates: start: 20170420
  6. SERTRALINE HYDROCHLORIDE. [Suspect]
     Active Substance: SERTRALINE HYDROCHLORIDE
     Indication: PRODUCT USED FOR UNKNOWN INDICATION
     Route: 048
     Dates: start: 20170420, end: 20170711

REACTIONS (3)
  - Cerebral infarction [Fatal]
  - Vasculitis cerebral [Fatal]
  - Cerebral vasoconstriction [Fatal]

NARRATIVE: CASE EVENT DATE: 20170702
